FAERS Safety Report 6817517-2 (Version None)
Quarter: 2010Q3

REPORT INFORMATION
  Report Type: 
  Country: None (occurrence: None)
  Receive Date: 20100706
  Receipt Date: 20100701
  Transmission Date: 20110219
  Serious: Yes (Other)
  Sender: FDA-Public Use
  Company Number: B0663342A

PATIENT
  Age: 30 Year
  Sex: Female

DRUGS (2)
  1. KIVEXA [Suspect]
     Dates: start: 20050101
  2. REYATAZ [Suspect]
     Dates: start: 20050101

REACTIONS (2)
  - DEPRESSION [None]
  - DIZZINESS [None]
